FAERS Safety Report 4745136-0 (Version None)
Quarter: 2005Q3

REPORT INFORMATION
  Report Type: 
  Country: None (occurrence: None)
  Receive Date: 20050815
  Receipt Date: 20050727
  Transmission Date: 20060218
  Serious: Yes (Life-Threatening, Hospitalization)
  Sender: FDA-Public Use
  Company Number: EMADSS2002001533

PATIENT
  Sex: Female

DRUGS (1)
  1. VERMOX [Suspect]
     Indication: DRUG USE FOR UNKNOWN INDICATION
     Route: 063
     Dates: start: 20020212, end: 20020212

REACTIONS (4)
  - APNOEA [None]
  - DRUG EXPOSURE VIA BREAST MILK [None]
  - SEDATION [None]
  - SKIN DISCOLOURATION [None]
